FAERS Safety Report 23959459 (Version 1)
Quarter: 2024Q2

REPORT INFORMATION
  Report Type: Spontaneous
  Country: JP (occurrence: JP)
  Receive Date: 20240611
  Receipt Date: 20240611
  Transmission Date: 20240716
  Serious: Yes (Death, Hospitalization)
  Sender: FDA-Public Use
  Company Number: JP-CHUGAI-2024009208

PATIENT
  Age: 85 Year
  Sex: Male
  Weight: 60 kg

DRUGS (7)
  1. ACTEMRA [Suspect]
     Active Substance: TOCILIZUMAB
     Indication: Rheumatoid arthritis
     Dosage: UNK
     Route: 065
     Dates: start: 20230704, end: 20240312
  2. ASPIRIN [Concomitant]
     Active Substance: ASPIRIN
     Dosage: UNK MILLIGRAM
  3. BISOPROLOL FUMARATE [Concomitant]
     Active Substance: BISOPROLOL FUMARATE
     Dosage: UNK MILLIGRAM
  4. FAMOTIDINE [Concomitant]
     Active Substance: FAMOTIDINE
     Dosage: UNK MILLIGRAM
  5. PITAVASTATIN CALCIUM [Concomitant]
     Active Substance: PITAVASTATIN CALCIUM
     Dosage: UNK MILLIGRAM
  6. ENALAPRIL MALEATE [Concomitant]
     Active Substance: ENALAPRIL MALEATE
     Dosage: UNK MILLIGRAM
  7. MAGNESIUM OXIDE [Concomitant]
     Active Substance: MAGNESIUM OXIDE
     Dosage: UNK MILLIGRAM

REACTIONS (5)
  - Sepsis [Fatal]
  - Pneumonia aspiration [Unknown]
  - Infectious pleural effusion [Unknown]
  - Abdominal pain lower [Unknown]
  - Back pain [Unknown]

NARRATIVE: CASE EVENT DATE: 20240312
